FAERS Safety Report 10973199 (Version 1)
Quarter: 2015Q2

REPORT INFORMATION
  Report Type: Report from Study
  Country: AU (occurrence: AU)
  Receive Date: 20150401
  Receipt Date: 20150401
  Transmission Date: 20150821
  Serious: Yes (Other)
  Sender: FDA-Public Use
  Company Number: AU-ROCHE-1555437

PATIENT

DRUGS (12)
  1. HYDROXYCHLOROQUINE [Concomitant]
     Active Substance: HYDROXYCHLOROQUINE
     Route: 065
  2. NICOTINAMIDE [Concomitant]
     Active Substance: NIACINAMIDE
     Route: 065
  3. MYCOPHENOLATE MOFETIL. [Suspect]
     Active Substance: MYCOPHENOLATE MOFETIL
     Indication: SKIN DISORDER
     Dosage: 2 G DAILY (RANGE: 0.5-3)
     Route: 065
  4. IMMUNOGLOBULIN IV [Suspect]
     Active Substance: HUMAN IMMUNOGLOBULIN G
     Indication: SKIN DISORDER
     Route: 042
  5. MINOCYCLINE [Concomitant]
     Active Substance: MINOCYCLINE\MINOCYCLINE HYDROCHLORIDE
     Route: 065
  6. ACITRETIN. [Concomitant]
     Active Substance: ACITRETIN
     Route: 065
  7. CYCLOPHOSPHAMIDE. [Suspect]
     Active Substance: CYCLOPHOSPHAMIDE
     Indication: SKIN DISORDER
     Route: 065
  8. CYCLOSPORIN [Suspect]
     Active Substance: CYCLOSPORINE
     Indication: SKIN DISORDER
     Route: 065
  9. DAPSONE. [Concomitant]
     Active Substance: DAPSONE
     Route: 065
  10. PREDNISOLONE. [Suspect]
     Active Substance: PREDNISOLONE
     Indication: SKIN DISORDER
     Route: 065
  11. CLOFAZIMINE [Concomitant]
     Active Substance: CLOFAZIMINE
     Route: 065
  12. TETRACYCLINE [Concomitant]
     Active Substance: TETRACYCLINE
     Route: 065

REACTIONS (17)
  - Onychomycosis [Unknown]
  - Lentigo maligna [Unknown]
  - Squamous cell carcinoma [Unknown]
  - Nausea [Unknown]
  - Actinic keratosis [Unknown]
  - Osteomyelitis [Unknown]
  - Respiratory tract infection [Unknown]
  - Thrombocytopenia [Unknown]
  - Diarrhoea [Unknown]
  - Wound infection [Unknown]
  - Skin papilloma [Unknown]
  - Vomiting [Unknown]
  - Herpes zoster [Unknown]
  - Folliculitis [Unknown]
  - Basal cell carcinoma [Unknown]
  - Herpes simplex [Unknown]
  - Lymphopenia [Unknown]
